FAERS Safety Report 4370228-8 (Version None)
Quarter: 2004Q2

REPORT INFORMATION
  Report Type: 
  Country: None (occurrence: None)
  Receive Date: 20040603
  Receipt Date: 20040419
  Transmission Date: 20050107
  Serious: No
  Sender: FDA-Public Use
  Company Number: US-BRISTOL-MYERS SQUIBB COMPANY-12564514

PATIENT
  Age: 51 Year
  Sex: Male
  Weight: 79 kg

DRUGS (5)
  1. ABILIFY [Suspect]
     Indication: SCHIZOPHRENIA
     Dosage: STOPPED ON 12-APR-2004, RESTARTED ON 18-APR-2004
     Route: 048
     Dates: start: 20040409
  2. RISPERDAL [Concomitant]
  3. ATIVAN [Concomitant]
  4. DALMANE [Concomitant]
  5. COGENTIN [Concomitant]

REACTIONS (4)
  - DERMATITIS EXFOLIATIVE [None]
  - ERYTHEMA [None]
  - RASH SCALY [None]
  - SCHIZOPHRENIA [None]
